FAERS Safety Report 6787255-3 (Version None)
Quarter: 2010Q2

REPORT INFORMATION
  Report Type: 
  Country: None (occurrence: None)
  Receive Date: 20100621
  Receipt Date: 20100608
  Transmission Date: 20101027
  Serious: Yes (Other)
  Sender: FDA-Public Use
  Company Number: 2010-1003

PATIENT
  Age: 39 Year
  Sex: Female

DRUGS (4)
  1. BOTULINUM TOXIN TYPE A [Suspect]
     Indication: SKIN WRINKLING
     Dosage: (SINGLE CYCLE), SUBCUTANEOUS
     Route: 058
     Dates: start: 20100303, end: 20100303
  2. PROPRANOLOL [Concomitant]
  3. MIRTAZAPINE [Concomitant]
  4. DIAZEPAM [Concomitant]

REACTIONS (3)
  - PHOTOPSIA [None]
  - VITREOUS DETACHMENT [None]
  - VITREOUS FLOATERS [None]
